FAERS Safety Report 19504291 (Version 2)
Quarter: 2021Q3

REPORT INFORMATION
  Report Type: Spontaneous
  Country: JP (occurrence: JP)
  Receive Date: 20210708
  Receipt Date: 20210913
  Transmission Date: 20211014
  Serious: Yes (Other)
  Sender: FDA-Public Use
  Company Number: JP-ROCHE-2862990

PATIENT
  Age: 41 Year
  Sex: Male
  Weight: 47.3 kg

DRUGS (11)
  1. PARACETAMOL [Concomitant]
     Active Substance: ACETAMINOPHEN
  2. VALIXA [Suspect]
     Active Substance: VALGANCICLOVIR
     Dosage: TABLET, 450 MILLIGRAM
     Route: 048
     Dates: start: 20200813, end: 20200818
  3. BILANOA [Concomitant]
     Active Substance: BILASTINE
  4. PREDNISOLONE. [Concomitant]
     Active Substance: PREDNISOLONE
  5. SAMTIREL [Concomitant]
     Active Substance: ATOVAQUONE
  6. NEXIUM [Concomitant]
     Active Substance: ESOMEPRAZOLE MAGNESIUM
  7. VALIXA [Suspect]
     Active Substance: VALGANCICLOVIR
     Indication: ACQUIRED IMMUNODEFICIENCY SYNDROME
     Dosage: TABLET, 450 MILLIGRAM
     Route: 048
     Dates: start: 20200729, end: 20200805
  8. FUNGIZONE [Concomitant]
     Active Substance: AMPHOTERICIN B
  9. BELSOMRA [Concomitant]
     Active Substance: SUVOREXANT
  10. FLUCONAZOLE. [Concomitant]
     Active Substance: FLUCONAZOLE
  11. ZITHROMAC [Concomitant]
     Active Substance: AZITHROMYCIN DIHYDRATE

REACTIONS (2)
  - Neutrophil count decreased [Recovered/Resolved]
  - White blood cell count decreased [Recovered/Resolved]

NARRATIVE: CASE EVENT DATE: 20200818
